FAERS Safety Report 10389099 (Version 2)
Quarter: 2014Q4

REPORT INFORMATION
  Report Type: Spontaneous
  Country: JP (occurrence: JP)
  Receive Date: 20140817
  Receipt Date: 20141124
  Transmission Date: 20150528
  Serious: Yes (Death, Life-Threatening, Hospitalization, Other)
  Sender: FDA-Public Use
  Company Number: PHHY2011JP122196

PATIENT
  Age: 75 Year
  Sex: Female

DRUGS (4)
  1. ZOMETA [Suspect]
     Active Substance: ZOLEDRONIC ACID
     Indication: BACK PAIN
  2. ZOMETA [Suspect]
     Active Substance: ZOLEDRONIC ACID
     Indication: METASTASES TO BONE
     Route: 065
     Dates: start: 20100901
  3. FEMARA [Suspect]
     Active Substance: LETROZOLE
     Indication: BREAST CANCER
     Route: 065
     Dates: start: 20101001
  4. ZOMETA [Suspect]
     Active Substance: ZOLEDRONIC ACID
     Indication: BREAST CANCER

REACTIONS (14)
  - General physical health deterioration [Recovered/Resolved]
  - Pleural effusion [Recovering/Resolving]
  - Malignant neoplasm progression [Recovering/Resolving]
  - Jaundice [Unknown]
  - Cellulitis [Fatal]
  - Malignant pleural effusion [Recovering/Resolving]
  - Bile duct obstruction [Unknown]
  - Hepatic function abnormal [Unknown]
  - Sepsis [Fatal]
  - Delirium [Unknown]
  - Breast cancer [Recovering/Resolving]
  - Pancreatitis [Unknown]
  - Dyspnoea [Recovering/Resolving]
  - Pancreatic carcinoma [Unknown]
